FAERS Safety Report 4988167-8 (Version None)
Quarter: 2006Q2

REPORT INFORMATION
  Report Type: 
  Country: None (occurrence: None)
  Receive Date: 20060425
  Receipt Date: 20060413
  Transmission Date: 20061013
  Serious: Yes (Other)
  Sender: FDA-Public Use
  Company Number: 200610505GDS

PATIENT
  Age: 77 Year
  Sex: Female
  Weight: 68.2 kg

DRUGS (6)
  1. CIPROFLOXACIN [Suspect]
     Indication: CELLULITIS
     Dosage: 500 MG, BID, ORAL
     Route: 048
     Dates: start: 19961012, end: 19961013
  2. VANCOMYCIN [Suspect]
     Indication: CELLULITIS
     Dosage: 1 G, QD, INTRAVENOUS
     Route: 042
     Dates: start: 19961013
  3. VANCOMYCIN [Suspect]
     Indication: CELLULITIS
     Dosage: 1 G, QD, INTRAVENOUS
     Route: 042
     Dates: start: 19961017
  4. VANCOMYCIN [Suspect]
     Indication: CELLULITIS
     Dosage: 1 G, QD, INTRAVENOUS
     Route: 042
     Dates: start: 19961019
  5. CLINDAMYCIN [Concomitant]
  6. ZITHROMAX [Concomitant]

REACTIONS (2)
  - RENAL FAILURE ACUTE [None]
  - URINE ANALYSIS ABNORMAL [None]
